FAERS Safety Report 21007657 (Version 2)
Quarter: 2023Q2

REPORT INFORMATION
  Report Type: Spontaneous
  Country: GB (occurrence: GB)
  Receive Date: 20220627
  Receipt Date: 20230608
  Transmission Date: 20230721
  Serious: Yes (Other)
  Sender: FDA-Public Use
  Company Number: None

PATIENT
  Age: 67 Year
  Sex: Male
  Weight: 102 kg

DRUGS (6)
  1. METHOTREXATE SODIUM [Suspect]
     Active Substance: METHOTREXATE SODIUM
     Dosage: 15 MG, (SIX TABLETS) WEEKLY
     Route: 048
     Dates: start: 20220419, end: 20220614
  2. METHOTREXATE SODIUM [Suspect]
     Active Substance: METHOTREXATE SODIUM
     Dosage: 15 MG, (SIX TABLETS) WEEKLY
     Route: 048
     Dates: start: 20220531, end: 20220614
  3. AMOXICILLIN [Concomitant]
     Active Substance: AMOXICILLIN
     Dosage: 500 MG, 3X/DAY
     Dates: start: 20220413, end: 20220512
  4. COCODAMOL [Concomitant]
     Active Substance: ACETAMINOPHEN\CODEINE PHOSPHATE
     Indication: Arthralgia
     Dosage: TWO TO BE TAKEN FOUR TIMES A DAY (30MG/500MG)
     Dates: start: 20220517
  5. PREDNISOLONE [Concomitant]
     Active Substance: PREDNISOLONE
     Indication: Polymyalgia rheumatica
     Dosage: 2 MG, AS DIRECTED - ON
     Dates: start: 20220517
  6. PREDNISOLONE [Concomitant]
     Active Substance: PREDNISOLONE
     Dosage: SIX TO BE TAKEN EACH DAY FOR 3 DAYS
     Dates: start: 20220614

REACTIONS (6)
  - Pruritus [Unknown]
  - Dermatitis [Unknown]
  - Erythema [Unknown]
  - Swelling [Unknown]
  - Abdominal discomfort [Unknown]
  - Burning sensation [Unknown]
